FAERS Safety Report 16107079 (Version 2)
Quarter: 2019Q2

REPORT INFORMATION
  Report Type: Report from Study
  Country: JP (occurrence: JP)
  Receive Date: 20190322
  Receipt Date: 20190523
  Transmission Date: 20190711
  Serious: Yes (Hospitalization, Other)
  Sender: FDA-Public Use
  Company Number: JP-ASTRAZENECA-2019SE43347

PATIENT
  Age: 79 Year
  Sex: Female
  Weight: 51 kg

DRUGS (7)
  1. NAIXAN [Concomitant]
     Active Substance: NAPROXEN SODIUM
     Indication: TUMOUR ASSOCIATED FEVER
     Dosage: AFTER EACH MEAL
     Route: 048
     Dates: start: 20190312, end: 20190411
  2. CLARITHROMYCIN. [Concomitant]
     Active Substance: CLARITHROMYCIN
     Indication: BRONCHIECTASIS
     Dosage: AFTER BREAKFAST
     Route: 048
     Dates: start: 20170612, end: 20190411
  3. MEDICON [Concomitant]
     Active Substance: DEXTROMETHORPHAN HYDROBROMIDE
     Indication: BRONCHIECTASIS
     Route: 048
     Dates: start: 20190312, end: 20190411
  4. FAMOTIDINE D [Concomitant]
     Active Substance: FAMOTIDINE
     Indication: PROPHYLAXIS AGAINST GASTROINTESTINAL ULCER
     Dosage: AFTER DINNER
     Route: 048
     Dates: start: 20190313
  5. TAGRISSO [Suspect]
     Active Substance: OSIMERTINIB
     Indication: NON-SMALL CELL LUNG CANCER
     Route: 048
     Dates: start: 20190228, end: 20190228
  6. TAGRISSO [Suspect]
     Active Substance: OSIMERTINIB
     Indication: NON-SMALL CELL LUNG CANCER
     Route: 048
     Dates: start: 20190320, end: 20190411
  7. AMBROXOL HYDROCHLORIDE [Concomitant]
     Active Substance: AMBROXOL HYDROCHLORIDE
     Indication: BRONCHIECTASIS
     Route: 048
     Dates: start: 20170612, end: 20190411

REACTIONS (3)
  - Liver disorder [Unknown]
  - Pneumonitis [Recovered/Resolved]
  - Rash generalised [Unknown]

NARRATIVE: CASE EVENT DATE: 20190311
